FAERS Safety Report 23287737 (Version 1)
Quarter: 2023Q4

REPORT INFORMATION
  Report Type: Report from Study
  Country: GT (occurrence: GT)
  Receive Date: 20231212
  Receipt Date: 20231212
  Transmission Date: 20240109
  Serious: Yes (Other)
  Sender: FDA-Public Use
  Company Number: GT-002147023-NVSC2023GT259231

PATIENT
  Age: 49 Year
  Sex: Female

DRUGS (1)
  1. KISQALI [Suspect]
     Active Substance: RIBOCICLIB
     Indication: Breast cancer
     Dosage: 600 MG, QD
     Route: 048
     Dates: start: 20220201

REACTIONS (4)
  - Neutropenia [Unknown]
  - Immunodeficiency [Unknown]
  - Urinary tract infection [Unknown]
  - Discomfort [Unknown]

NARRATIVE: CASE EVENT DATE: 20231106
